FAERS Safety Report 6932408-4 (Version None)
Quarter: 2010Q3

REPORT INFORMATION
  Report Type: 
  Country: None (occurrence: None)
  Receive Date: 20100817
  Receipt Date: 20100802
  Transmission Date: 20110219
  Serious: Yes (Hospitalization)
  Sender: FDA-Public Use
  Company Number: CIP10001864

PATIENT
  Sex: Female

DRUGS (15)
  1. ACTONEL [Suspect]
     Indication: OSTEOPOROSIS
     Dosage: ORAL
     Route: 048
     Dates: start: 20080101
  2. OXYGEN (OXYGEN) [Concomitant]
  3. SEREVENT [Concomitant]
  4. ATROVENT [Concomitant]
  5. XOLAIR [Concomitant]
  6. PRILOSEC (OMEPRAZOLE MAGNESIUM) [Concomitant]
  7. FLOVENT [Concomitant]
  8. NEURONTIN [Concomitant]
  9. MORPHINE [Concomitant]
  10. ALLEGRA [Concomitant]
  11. ALBUTEROL [Concomitant]
  12. OMEPRAZOLE [Concomitant]
  13. CALCIUM (CALCIUM) [Concomitant]
  14. VITAMIN D NOS (VITAMIN D NOS) [Concomitant]
  15. CARDIZEM CD [Concomitant]

REACTIONS (7)
  - CONCUSSION [None]
  - DEVICE RELATED INFECTION [None]
  - FALL [None]
  - IMPAIRED HEALING [None]
  - INFECTION [None]
  - LOWER LIMB FRACTURE [None]
  - OSTEOMYELITIS [None]
